FAERS Safety Report 5571504-3 (Version None)
Quarter: 2007Q4

REPORT INFORMATION
  Report Type: 
  Country: None (occurrence: None)
  Receive Date: 20071221
  Receipt Date: 20071211
  Transmission Date: 20080405
  Serious: No
  Sender: FDA-Public Use
  Company Number: US-BAYER-200716065NA

PATIENT
  Age: 23 Year
  Sex: Female

DRUGS (3)
  1. YAZ [Suspect]
     Indication: CONTRACEPTION
     Dates: start: 20071202
  2. DOXYCYCLINE [Concomitant]
     Indication: ABORTION
     Dates: start: 20071202, end: 20071209
  3. ERGONOVINE [Concomitant]
     Indication: POST PROCEDURAL HAEMORRHAGE
     Dates: start: 20071202, end: 20071203

REACTIONS (1)
  - VAGINAL INFECTION [None]
